FAERS Safety Report 6677528-7 (Version None)
Quarter: 2010Q2

REPORT INFORMATION
  Report Type: 
  Country: None (occurrence: None)
  Receive Date: 20100412
  Receipt Date: 20100121
  Transmission Date: 20101027
  Serious: No
  Sender: FDA-Public Use
  Company Number: US-ALEXION-A201000081

PATIENT
  Sex: Male

DRUGS (7)
  1. SOLIRIS [Suspect]
     Indication: PAROXYSMAL NOCTURNAL HAEMOGLOBINURIA
     Dosage: 600 MG, QW X4
     Route: 042
     Dates: start: 20080424, end: 20080514
  2. SOLIRIS [Suspect]
     Dosage: 900 MG, Q2W
     Route: 042
     Dates: start: 20080521
  3. PHENYTOIN [Concomitant]
     Dosage: 3 PILLS HS
     Route: 048
  4. PHENYTOIN [Concomitant]
     Dosage: 4 PILLS HS
     Route: 048
     Dates: start: 20100101
  5. DILTIAZEM HCL [Concomitant]
     Dosage: 120 MG, BID
  6. FOLIC ACID [Concomitant]
     Dosage: 1 MG, BID
  7. CALCIUM [Concomitant]
     Dosage: 650 MG, TID

REACTIONS (11)
  - ANGER [None]
  - DEPRESSED MOOD [None]
  - DYSPHAGIA [None]
  - FATIGUE [None]
  - FRUSTRATION [None]
  - MIGRAINE [None]
  - MUSCULOSKELETAL STIFFNESS [None]
  - PHOTOPHOBIA [None]
  - TACHYPHRENIA [None]
  - TINNITUS [None]
  - VISUAL IMPAIRMENT [None]
